FAERS Safety Report 8045486-9 (Version None)
Quarter: 2012Q1

REPORT INFORMATION
  Report Type: 
  Country: None (occurrence: None)
  Receive Date: 20120113
  Receipt Date: 20120110
  Transmission Date: 20120608
  Serious: Yes (Other)
  Sender: FDA-Public Use
  Company Number: US-PFIZER INC-2011294302

PATIENT
  Sex: Female
  Weight: 79.365 kg

DRUGS (2)
  1. CHANTIX [Suspect]
     Dosage: UNK
     Dates: start: 20110101
  2. CHANTIX [Suspect]
     Indication: SMOKING CESSATION THERAPY
     Dosage: UNK
     Route: 048
     Dates: start: 20100101

REACTIONS (7)
  - BLOOD CHOLESTEROL INCREASED [None]
  - HEADACHE [None]
  - BLOOD PRESSURE INCREASED [None]
  - VOMITING [None]
  - ABDOMINAL DISCOMFORT [None]
  - WEIGHT INCREASED [None]
  - DIABETES MELLITUS [None]
